FAERS Safety Report 10273509 (Version 2)
Quarter: 2014Q3

REPORT INFORMATION
  Report Type: Report from Study
  Country: BR (occurrence: BR)
  Receive Date: 20140702
  Receipt Date: 20140716
  Transmission Date: 20150326
  Serious: Yes (Other)
  Sender: FDA-Public Use
  Company Number: BR-ABBVIE-14P-020-1253760-00

PATIENT
  Age: 16 Year
  Sex: Female
  Weight: 50 kg

DRUGS (4)
  1. CITALOPRAM [Concomitant]
     Active Substance: CITALOPRAM HYDROBROMIDE
     Indication: NERVOUSNESS
     Dosage: IN THE MORNING
     Route: 048
     Dates: start: 2014
  2. DEPAKOTE ER [Suspect]
     Active Substance: DIVALPROEX SODIUM
     Indication: CONVULSION
     Dosage: AT 8:00PM
     Route: 048
     Dates: end: 201406
  3. NAPRIX A [Concomitant]
     Indication: HEADACHE
     Route: 048
     Dates: start: 2012
  4. HIDANTAL [Concomitant]
     Active Substance: PHENYTOIN SODIUM
     Indication: CONVULSION
     Route: 048

REACTIONS (6)
  - Nausea [Not Recovered/Not Resolved]
  - Crying [Unknown]
  - Convulsion [Unknown]
  - Somnolence [Not Recovered/Not Resolved]
  - Headache [Recovering/Resolving]
  - Delirium [Not Recovered/Not Resolved]

NARRATIVE: CASE EVENT DATE: 201406
